FAERS Safety Report 5717291-7 (Version None)
Quarter: 2008Q2

REPORT INFORMATION
  Report Type: 
  Country: None (occurrence: None)
  Receive Date: 20080423
  Receipt Date: 20080415
  Transmission Date: 20081010
  Serious: Yes (Other)
  Sender: FDA-Public Use
  Company Number: CHNY2008DE01646

PATIENT
  Age: 4 Year
  Sex: Male

DRUGS (1)
  1. OTRIVIN [Suspect]
     Indication: RHINITIS
     Dosage: NASAL
     Route: 045
     Dates: start: 20080411, end: 20080414

REACTIONS (1)
  - BLOOD GLUCOSE INCREASED [None]
